FAERS Safety Report 9690918 (Version 1)
Quarter: 2013Q4

REPORT INFORMATION
  Report Type: Spontaneous
  Country: US (occurrence: US)
  Receive Date: 20131115
  Receipt Date: 20131115
  Transmission Date: 20140711
  Serious: Yes (Other)
  Sender: FDA-Public Use
  Company Number: US-PFIZER INC-2013326044

PATIENT
  Age: 61 Year
  Sex: Female
  Weight: 58.5 kg

DRUGS (4)
  1. PREMARIN [Suspect]
     Indication: MENOPAUSAL SYMPTOMS
     Dosage: 0.3 MG, 1X/DAY
     Route: 048
     Dates: start: 2005, end: 20131024
  2. PREMARIN [Suspect]
     Dosage: 0.3 MG, ONCE EVERY OTHER DAY
     Route: 048
     Dates: start: 20131024, end: 20131113
  3. PREMARIN [Suspect]
     Dosage: 0.15 MG, CONSUMED ONE HALF OF 0.3 MG TABLET BY CUTTING IN HALF
     Route: 048
     Dates: start: 20131113
  4. PROGESTERONE [Concomitant]
     Dosage: UNK

REACTIONS (3)
  - Neuroma [Recovered/Resolved]
  - Drug prescribing error [Unknown]
  - Wrong technique in drug usage process [Unknown]
